FAERS Safety Report 11504711 (Version 1)
Quarter: 2015Q3

REPORT INFORMATION
  Report Type: Spontaneous
  Country: US (occurrence: US)
  Receive Date: 20150915
  Receipt Date: 20150915
  Transmission Date: 20151125
  Serious: No
  Sender: FDA-Public Use
  Company Number: US-ROCHE-708943

PATIENT
  Age: 48 Year
  Sex: Male
  Weight: 81.6 kg

DRUGS (2)
  1. RIBAVIRIN. [Suspect]
     Active Substance: RIBAVIRIN
     Indication: CHRONIC HEPATITIS C
     Dosage: DIVIDED DOSES 3/3
     Route: 048
  2. PEGASYS [Suspect]
     Active Substance: PEGINTERFERON ALFA-2A
     Indication: CHRONIC HEPATITIS C
     Route: 058

REACTIONS (13)
  - Aspartate aminotransferase increased [Unknown]
  - Dermatitis acneiform [Not Recovered/Not Resolved]
  - Platelet count decreased [Not Recovered/Not Resolved]
  - Furuncle [Unknown]
  - Platelet count decreased [Unknown]
  - White blood cell count decreased [Unknown]
  - Injection site erythema [Not Recovered/Not Resolved]
  - Abscess limb [Not Recovered/Not Resolved]
  - Influenza like illness [Recovering/Resolving]
  - Skin discolouration [Unknown]
  - Arthropathy [Not Recovered/Not Resolved]
  - Bacillus infection [Unknown]
  - Pyrexia [Recovering/Resolving]

NARRATIVE: CASE EVENT DATE: 201004
